FAERS Safety Report 18211576 (Version 1)
Quarter: 2020Q3

REPORT INFORMATION
  Report Type: Spontaneous
  Country: CN (occurrence: CN)
  Receive Date: 20200831
  Receipt Date: 20200831
  Transmission Date: 20201103
  Serious: Yes (Other)
  Sender: FDA-Public Use
  Company Number: CN-BAXTER-2020BAX017669

PATIENT
  Age: 49 Year
  Sex: Female
  Weight: 59 kg

DRUGS (19)
  1. ENDOXAN [Suspect]
     Active Substance: CYCLOPHOSPHAMIDE
     Dosage: DOSE RE?INTRODUCED, ENDOXAN + NS
     Route: 042
     Dates: start: 202008
  2. 0.9% SODIUM CHLORIDE INJECTION [Suspect]
     Active Substance: SODIUM CHLORIDE
     Dosage: DOSE RE?INTRODUCED, FAMAXIN + NS
     Route: 041
     Dates: start: 202008
  3. TAISUODI [DOCETAXEL] [Suspect]
     Active Substance: DOCETAXEL
     Dosage: THIRD CHEMOTHERAPY, TAISUODI 115 MG + NS 250 ML
     Route: 041
     Dates: start: 20200718, end: 20200718
  4. ENDOXAN [Suspect]
     Active Substance: CYCLOPHOSPHAMIDE
     Indication: BREAST CANCER FEMALE
     Dosage: FIRST TO SECOND CHEMOTHERAPY, ENDOXAN + NS
     Route: 042
  5. 0.9% SODIUM CHLORIDE INJECTION [Suspect]
     Active Substance: SODIUM CHLORIDE
     Indication: MEDICATION DILUTION
     Dosage: FIRST TO SECOND CHEMOTHERAPY, ENDOXAN + NS
     Route: 042
  6. 0.9% SODIUM CHLORIDE INJECTION [Suspect]
     Active Substance: SODIUM CHLORIDE
     Dosage: THIRD CHEMOTHERAPY, ENDOXAN 750 MG + NS 35 ML
     Route: 042
     Dates: start: 20200718, end: 20200718
  7. 0.9% SODIUM CHLORIDE INJECTION [Suspect]
     Active Substance: SODIUM CHLORIDE
     Dosage: THIRD CHEMOTHERAPY, FAMAXIN 115 MG + NS 100 ML
     Route: 041
     Dates: start: 20200718, end: 20200718
  8. FAMAXIN (EPIRUBICIN HYDROCHLORIDE) [Suspect]
     Active Substance: EPIRUBICIN HYDROCHLORIDE
     Indication: BREAST CANCER FEMALE
     Dosage: FIRST TO SECOND CHEMOTHERAPY, FAMAXIN + NS
     Route: 041
  9. FAMAXIN (EPIRUBICIN HYDROCHLORIDE) [Suspect]
     Active Substance: EPIRUBICIN HYDROCHLORIDE
     Dosage: DOSE RE?INTRODUCED, FAMAXIN + NS
     Route: 041
     Dates: start: 202008
  10. 0.9% SODIUM CHLORIDE INJECTION [Suspect]
     Active Substance: SODIUM CHLORIDE
     Dosage: DOSE RE?INTRODUCED, TAISUODI + NS
     Route: 041
     Dates: start: 202008
  11. FAMAXIN (EPIRUBICIN HYDROCHLORIDE) [Suspect]
     Active Substance: EPIRUBICIN HYDROCHLORIDE
     Dosage: THIRD CHEMOTHERAPY, FAMAXIN 115 MG + NS 100 ML
     Route: 041
     Dates: start: 20200718, end: 20200718
  12. JINYOULI [Concomitant]
     Active Substance: ANF-RHO
     Indication: PROPHYLAXIS
     Route: 058
     Dates: start: 20200719, end: 20200719
  13. 0.9% SODIUM CHLORIDE INJECTION [Suspect]
     Active Substance: SODIUM CHLORIDE
     Dosage: FIRST TO SECOND CHEMOTHERAPY, TAISUODI + NS
     Route: 041
  14. TAISUODI [DOCETAXEL] [Suspect]
     Active Substance: DOCETAXEL
     Indication: BREAST CANCER FEMALE
     Dosage: FIRST TO SECOND CHEMOTHERAPY, TAISUODI + NS
     Route: 041
  15. 0.9% SODIUM CHLORIDE INJECTION [Suspect]
     Active Substance: SODIUM CHLORIDE
     Dosage: FIRST TO SECOND CHEMOTHERAPY, FAMAXIN + NS
     Route: 041
  16. ENDOXAN [Suspect]
     Active Substance: CYCLOPHOSPHAMIDE
     Dosage: THIRD CHEMOTHERAPY, ENDOXAN 750 MG + NS 35 ML
     Route: 042
     Dates: start: 20200718, end: 20200718
  17. 0.9% SODIUM CHLORIDE INJECTION [Suspect]
     Active Substance: SODIUM CHLORIDE
     Dosage: THIRD CHEMOTHERAPY, TAISUODI 115 MG + NS 250 ML
     Route: 041
     Dates: start: 20200718, end: 20200718
  18. 0.9% SODIUM CHLORIDE INJECTION [Suspect]
     Active Substance: SODIUM CHLORIDE
     Dosage: DOSE RE?INTRODUCED, ENDOXAN + NS
     Route: 042
     Dates: start: 202008
  19. TAISUODI [DOCETAXEL] [Suspect]
     Active Substance: DOCETAXEL
     Dosage: DOSE RE?INTRODUCED, TAISUODI + NS
     Route: 041
     Dates: start: 202008

REACTIONS (2)
  - Leukopenia [Recovered/Resolved]
  - Agranulocytosis [Recovered/Resolved]

NARRATIVE: CASE EVENT DATE: 20200725
